FAERS Safety Report 9305836 (Version 2)
Quarter: 2013Q2

REPORT INFORMATION
  Report Type: Spontaneous
  Country: US (occurrence: US)
  Receive Date: 20130523
  Receipt Date: 20130605
  Transmission Date: 20140414
  Serious: No
  Sender: FDA-Public Use
  Company Number: US-PFIZER INC-2013154818

PATIENT
  Age: 69 Year
  Sex: Male
  Weight: 81.63 kg

DRUGS (7)
  1. XELJANZ [Suspect]
     Indication: RHEUMATOID ARTHRITIS
     Dosage: 5 MG, 1 TABLET TWICE A DAY
     Route: 048
     Dates: start: 20130307, end: 20130308
  2. PREDNISONE [Concomitant]
     Dosage: 5 MG
  3. ADALAT CC [Concomitant]
     Dosage: 30 MG
  4. TRAMADOL HCL [Concomitant]
     Dosage: 50 MG
  5. KLOR-CON M15 [Concomitant]
     Dosage: UNK
  6. OXYCODONE [Concomitant]
     Dosage: 5 MG
  7. CALCIUM+ D TAB [Concomitant]
     Dosage: UNK

REACTIONS (7)
  - Headache [Recovered/Resolved]
  - Nausea [Recovered/Resolved]
  - Fatigue [Recovered/Resolved]
  - Asthenia [Recovered/Resolved]
  - Pain in jaw [Recovered/Resolved]
  - Diarrhoea [Recovered/Resolved]
  - Vision blurred [Recovered/Resolved]
